FAERS Safety Report 16235186 (Version 3)
Quarter: 2019Q4

REPORT INFORMATION
  Report Type: Spontaneous
  Country: JP (occurrence: JP)
  Receive Date: 20190424
  Receipt Date: 20191203
  Transmission Date: 20200122
  Serious: Yes (Hospitalization)
  Sender: FDA-Public Use
  Company Number: JP-OTSUKA-2019_013787

PATIENT
  Age: 43 Year
  Sex: Female
  Weight: 67 kg

DRUGS (31)
  1. LOXONIN [Concomitant]
     Active Substance: LOXOPROFEN SODIUM
     Dosage: 3 DF, DAILY DOSE
     Route: 048
     Dates: start: 20190327
  2. SENNARIDE [Concomitant]
     Active Substance: SENNOSIDES A AND B
     Indication: PRODUCT USED FOR UNKNOWN INDICATION
     Dosage: 2 DF, PRN FORCONSTIPATION
     Route: 065
  3. DEPAS [Concomitant]
     Indication: PRODUCT USED FOR UNKNOWN INDICATION
     Dosage: 3 DF, UNK
     Route: 065
     Dates: start: 20190403
  4. REXULTI [Suspect]
     Active Substance: BREXPIPRAZOLE
     Indication: HALLUCINATION
  5. LOXONIN [Concomitant]
     Active Substance: LOXOPROFEN SODIUM
     Dosage: 2 DF, UNK
     Route: 048
     Dates: start: 20190508
  6. HALOPERIDOL. [Concomitant]
     Active Substance: HALOPERIDOL
     Indication: PRODUCT USED FOR UNKNOWN INDICATION
     Dosage: 1 DF, PRN FOR UNREST
     Route: 030
  7. REBAMIPIDE [Concomitant]
     Active Substance: REBAMIPIDE
     Indication: PRODUCT USED FOR UNKNOWN INDICATION
     Dosage: 3 DF, UNK
     Route: 065
     Dates: start: 20190403
  8. MEILAX [Concomitant]
     Active Substance: ETHYL LOFLAZEPATE
     Indication: PRODUCT USED FOR UNKNOWN INDICATION
     Dosage: 2 MG, DAILY DOSE
     Route: 048
     Dates: start: 20190130
  9. BROTIZOLAM [Concomitant]
     Active Substance: BROTIZOLAM
     Indication: PRODUCT USED FOR UNKNOWN INDICATION
     Dosage: 1 DF, UNK
     Route: 048
     Dates: start: 20190130
  10. REXULTI [Suspect]
     Active Substance: BREXPIPRAZOLE
     Indication: HALLUCINATION
  11. REXULTI [Suspect]
     Active Substance: BREXPIPRAZOLE
     Indication: DELUSION
  12. REXULTI [Suspect]
     Active Substance: BREXPIPRAZOLE
     Indication: SCHIZOPHRENIA
     Dosage: 1 MG, DAILY DOSE
     Route: 048
     Dates: start: 20190130, end: 20190205
  13. LYRICA [Concomitant]
     Active Substance: PREGABALIN
     Dosage: 2 DF, DAILY DOSE
     Route: 048
     Dates: start: 20190403
  14. LYRICA [Concomitant]
     Active Substance: PREGABALIN
     Dosage: 2 DF, UNK
     Route: 048
     Dates: start: 20190508
  15. DEPAKENE-R [Concomitant]
     Active Substance: VALPROATE SODIUM
     Indication: PRODUCT USED FOR UNKNOWN INDICATION
     Dosage: 200 MG, DAILY DOSE
     Route: 048
     Dates: start: 20190130
  16. TELEMINSOFT [Concomitant]
     Active Substance: BISACODYL
     Indication: PRODUCT USED FOR UNKNOWN INDICATION
     Dosage: UNK
     Route: 065
     Dates: start: 20190410
  17. REXULTI [Suspect]
     Active Substance: BREXPIPRAZOLE
     Indication: SCHIZOPHRENIA
     Dosage: 2 MG, DAILY DOSE
     Route: 048
     Dates: start: 20190206, end: 20190411
  18. REXULTI [Suspect]
     Active Substance: BREXPIPRAZOLE
     Indication: DELUSION
  19. NITRAZEPAM [Concomitant]
     Active Substance: NITRAZEPAM
     Indication: PRODUCT USED FOR UNKNOWN INDICATION
     Dosage: 2 DF, PRN FORSLEEPLESSNESS
     Route: 065
  20. AKINETON [Concomitant]
     Active Substance: BIPERIDEN HYDROCHLORIDE
     Indication: PRODUCT USED FOR UNKNOWN INDICATION
     Dosage: 1 DF, PRN FOR UNREST
     Route: 030
  21. NIZORAL [Concomitant]
     Active Substance: KETOCONAZOLE
     Indication: PRODUCT USED FOR UNKNOWN INDICATION
     Dosage: UNK
     Route: 065
     Dates: start: 20190313
  22. LYRICA [Concomitant]
     Active Substance: PREGABALIN
     Indication: PRODUCT USED FOR UNKNOWN INDICATION
     Dosage: 3 DF, DAILY DOSE
     Route: 048
     Dates: start: 20190327, end: 20190402
  23. LOXONIN [Concomitant]
     Active Substance: LOXOPROFEN SODIUM
     Dosage: 2 DF, UNK
     Route: 048
     Dates: start: 20190313
  24. RISPERDAL [Concomitant]
     Active Substance: RISPERIDONE
     Indication: PRODUCT USED FOR UNKNOWN INDICATION
     Dosage: 2 MG, DAILY DOSE
     Route: 048
     Dates: start: 20190227, end: 20190312
  25. SELTOUCH [Concomitant]
     Active Substance: FELBINAC
     Indication: PRODUCT USED FOR UNKNOWN INDICATION
     Dosage: UNK
     Route: 065
     Dates: start: 20190410
  26. QUETIAPINE. [Concomitant]
     Active Substance: QUETIAPINE
     Dosage: 25 MG, DAILY DOSE
     Route: 048
     Dates: end: 20190214
  27. EURODIN [Concomitant]
     Indication: PRODUCT USED FOR UNKNOWN INDICATION
     Dosage: 1 MG, DAILY DOSE
     Route: 048
     Dates: start: 20190130
  28. JUVELA [Concomitant]
     Active Substance: .ALPHA.-TOCOPHEROL\RETINOL
     Indication: PRODUCT USED FOR UNKNOWN INDICATION
     Dosage: UNK
     Route: 065
     Dates: start: 20190201
  29. REBAMIPIDE [Concomitant]
     Active Substance: REBAMIPIDE
     Dosage: 2 DF, UNK
     Route: 065
     Dates: start: 20190508
  30. LOXONIN [Concomitant]
     Active Substance: LOXOPROFEN SODIUM
     Indication: PRODUCT USED FOR UNKNOWN INDICATION
     Dosage: 3 DF, DAILY DOSE
     Route: 048
     Dates: start: 20190306
  31. QUETIAPINE. [Concomitant]
     Active Substance: QUETIAPINE
     Indication: PRODUCT USED FOR UNKNOWN INDICATION
     Dosage: 50 MG, DAILY DOSE
     Route: 048
     Dates: start: 20190130, end: 20190205

REACTIONS (3)
  - Muscle rigidity [Recovered/Resolved]
  - Salivary hypersecretion [Recovered/Resolved]
  - Blood creatine phosphokinase increased [Recovered/Resolved]

NARRATIVE: CASE EVENT DATE: 20190412
